FAERS Safety Report 4290966-5 (Version None)
Quarter: 2004Q1

REPORT INFORMATION
  Report Type: 
  Country: None (occurrence: None)
  Receive Date: 20040206
  Receipt Date: 20040206
  Transmission Date: 20041129
  Serious: Yes (Other)
  Sender: FDA-Public Use
  Company Number: None

PATIENT
  Sex: Female
  Weight: 100.8 kg

DRUGS (2)
  1. IMDUR [Suspect]
     Indication: CORONARY ARTERY DISEASE
     Dosage: 30 MG QD/ INDEFINITE
  2. PRINIVIL [Suspect]
     Indication: HYPERTENSION
     Dosage: 20 MG BID

REACTIONS (7)
  - CHEST PAIN [None]
  - DRUG EFFECT DECREASED [None]
  - HEART RATE INCREASED [None]
  - HYPERHIDROSIS [None]
  - HYPOAESTHESIA [None]
  - PHARMACEUTICAL PRODUCT COMPLAINT [None]
  - VOMITING [None]
